FAERS Safety Report 16740296 (Version 1)
Quarter: 2019Q4

REPORT INFORMATION
  Report Type: Spontaneous
  Country: US (occurrence: US)
  Receive Date: 20190823
  Receipt Date: 20190823
  Transmission Date: 20200122
  Serious: Yes (Other)
  Sender: FDA-Public Use
  Company Number: None

PATIENT
  Age: 41 Year
  Sex: Female

DRUGS (2)
  1. SENSODYNE REPAIR AND PROTECT [Suspect]
     Active Substance: STANNOUS FLUORIDE
     Indication: DENTAL CLEANING
     Dates: start: 20190818, end: 20190823
  2. SENSODYNE REPAIR AND PROTECT [Suspect]
     Active Substance: STANNOUS FLUORIDE
     Indication: DENTAL CARE
     Dates: start: 20190818, end: 20190823

REACTIONS (8)
  - Chapped lips [None]
  - Dysphagia [None]
  - Stomatitis [None]
  - Oropharyngeal pain [None]
  - Aphthous ulcer [None]
  - Gingival pain [None]
  - Oral pain [None]
  - Glossodynia [None]

NARRATIVE: CASE EVENT DATE: 20190820
